FAERS Safety Report 19888279 (Version 5)
Quarter: 2021Q4

REPORT INFORMATION
  Report Type: Spontaneous
  Country: TR (occurrence: TR)
  Receive Date: 20210927
  Receipt Date: 20211220
  Transmission Date: 20220303
  Serious: Yes (Hospitalization)
  Sender: FDA-Public Use
  Company Number: TR-CELGENE-TUR-20210905329

PATIENT
  Age: 72 Year
  Sex: Male
  Weight: 76.5 kg

DRUGS (15)
  1. AZACITIDINE [Suspect]
     Active Substance: AZACITIDINE
     Indication: Myelodysplastic syndrome
     Route: 058
     Dates: start: 20210426, end: 20210818
  2. AZACITIDINE [Suspect]
     Active Substance: AZACITIDINE
     Route: 058
     Dates: start: 20210906, end: 20210914
  3. VENETOCLAX [Suspect]
     Active Substance: VENETOCLAX
     Indication: Myelodysplastic syndrome
     Dosage: 400 MILLIGRAM
     Route: 048
     Dates: start: 20210426, end: 20210606
  4. VENETOCLAX [Suspect]
     Active Substance: VENETOCLAX
     Dosage: 200 MILLIGRAM
     Route: 048
     Dates: start: 20210618
  5. VALTREX [Concomitant]
     Active Substance: VALACYCLOVIR HYDROCHLORIDE
     Indication: Infection prophylaxis
     Dosage: 500 MILLIGRAM
     Route: 048
     Dates: start: 20210426
  6. Tanflex Gargara [Concomitant]
     Indication: Prophylaxis
     Dosage: 45 MILLILITER
     Route: 048
     Dates: start: 20210426
  7. FLUCONAZOLE [Concomitant]
     Active Substance: FLUCONAZOLE
     Indication: Infection prophylaxis
     Dosage: 100 MILLIGRAM
     Route: 048
     Dates: start: 20210426
  8. CARVEDILOL [Concomitant]
     Active Substance: CARVEDILOL
     Indication: Myocardial infarction
     Dosage: 6.25 MILLIGRAM
     Route: 048
     Dates: start: 20210410
  9. DIGOXIN [Concomitant]
     Active Substance: DIGOXIN
     Indication: Ischaemic heart disease prophylaxis
     Dosage: .25 MILLIGRAM
     Route: 048
     Dates: start: 20210410
  10. INSPRA [Concomitant]
     Active Substance: EPLERENONE
     Indication: Ischaemic heart disease prophylaxis
     Dosage: 25 MILLIGRAM
     Route: 048
     Dates: start: 20210410
  11. PANTOPRAZOLE SODIUM [Concomitant]
     Active Substance: PANTOPRAZOLE SODIUM
     Indication: Prophylaxis
     Dosage: 40 MILLIGRAM
     Route: 048
     Dates: start: 20210410
  12. TAZERACIN [Concomitant]
     Indication: Urinary tract infection
     Dosage: 4.5 GRAM
     Route: 048
     Dates: start: 20210819, end: 20210827
  13. TAZERACIN [Concomitant]
     Indication: Neutropenia
     Dosage: 13.5 GRAM
     Route: 048
     Dates: start: 20210907, end: 20210917
  14. AUGMENTIN [Concomitant]
     Active Substance: AMOXICILLIN\CLAVULANATE POTASSIUM
     Indication: Neutropenia
     Route: 065
     Dates: start: 20210629, end: 20210705
  15. CIFLOSIN [Concomitant]
     Indication: Neutropenia
     Route: 065
     Dates: start: 20210629, end: 20210703

REACTIONS (2)
  - C-reactive protein increased [Recovered/Resolved]
  - Neutropenia [Recovered/Resolved]

NARRATIVE: CASE EVENT DATE: 20210913
